APPROVED DRUG PRODUCT: CYCLOPHOSPHAMIDE
Active Ingredient: CYCLOPHOSPHAMIDE
Strength: 25MG
Dosage Form/Route: CAPSULE;ORAL
Application: A215892 | Product #001 | TE Code: AB
Applicant: ALEMBIC PHARMACEUTICALS LTD
Approved: Nov 10, 2022 | RLD: No | RS: No | Type: RX